FAERS Safety Report 8588406 (Version 3)
Quarter: 2013Q1

REPORT INFORMATION
  Report Type: Report from Study
  Country: NL (occurrence: NL)
  Receive Date: 20120531
  Receipt Date: 20130222
  Transmission Date: 20140127
  Serious: Yes (Life-Threatening)
  Sender: FDA-Public Use
  Company Number: NL-ROCHE-1073063

PATIENT
  Age: 78 Year
  Sex: Male
  Weight: 82 kg

DRUGS (9)
  1. RITUXIMAB [Suspect]
     Indication: MALIGNANT LYMPHOID NEOPLASM
     Dosage: LAST DOSE PRIOR TO THE SAE ON 29/APR/2012
     Route: 042
     Dates: start: 20120425
  2. G-CSF [Suspect]
     Indication: MALIGNANT LYMPHOID NEOPLASM
     Dosage: LAST DOSE PRIOR TO THE SAE ON 26/APR/2012
     Route: 058
     Dates: start: 20120426
  3. CYCLOPHOSPHAMIDE [Suspect]
     Indication: MALIGNANT LYMPHOID NEOPLASM
     Dosage: LAST DOSE PRIOR TO THE SAE ON 28/APR/2012
     Route: 042
     Dates: start: 20120425
  4. DOXORUBICIN [Suspect]
     Indication: MALIGNANT LYMPHOID NEOPLASM
     Dosage: LAST DOSE PRIOR TO THE SAE ON 28/APR/2012
     Route: 042
     Dates: start: 20120425
  5. VINCRISTINE [Suspect]
     Indication: MALIGNANT LYMPHOID NEOPLASM
     Dosage: LAST DOSE PRIOR TO THE SAE ON 28/APR/2012
     Route: 042
     Dates: start: 20120425
  6. PREDNISONE [Suspect]
     Indication: MALIGNANT LYMPHOID NEOPLASM
     Dosage: LAST DOSE PRIOR TO THE SAE ON 29/APR/2012
     Route: 048
     Dates: start: 20120425
  7. OMEPRAZOL [Concomitant]
     Route: 048
     Dates: start: 201203, end: 20120501
  8. ENALAPRIL [Concomitant]
     Indication: HYPERTENSION
     Route: 048
     Dates: start: 201203, end: 20120501
  9. HYDROCHLOROTHIAZIDE [Concomitant]
     Indication: HYPERTENSION
     Route: 048
     Dates: start: 201203, end: 20120501

REACTIONS (1)
  - Pulmonary embolism [Recovered/Resolved with Sequelae]
